FAERS Safety Report 5713261-3 (Version None)
Quarter: 2008Q2

REPORT INFORMATION
  Report Type: 
  Country: None (occurrence: None)
  Receive Date: 20080422
  Receipt Date: 20080412
  Transmission Date: 20081010
  Serious: Yes (Other)
  Sender: FDA-Public Use
  Company Number: US-PFIZER INC-2008032735

PATIENT
  Sex: Female
  Weight: 46.7 kg

DRUGS (3)
  1. LIPITOR [Suspect]
     Indication: BLOOD CHOLESTEROL INCREASED
     Dates: start: 20080313, end: 20080411
  2. PRANDIN [Concomitant]
  3. VALSARTAN [Concomitant]

REACTIONS (4)
  - EYE PAIN [None]
  - MYALGIA [None]
  - PAIN IN EXTREMITY [None]
  - SENSATION OF HEAVINESS [None]
